FAERS Safety Report 7504293-3 (Version None)
Quarter: 2011Q2

REPORT INFORMATION
  Report Type: 
  Country: None (occurrence: None)
  Receive Date: 20110525
  Receipt Date: 20110512
  Transmission Date: 20111010
  Serious: Yes (Disabling, Other)
  Sender: FDA-Public Use
  Company Number: US-UCBSA-025027

PATIENT
  Sex: Female
  Weight: 99.79 kg

DRUGS (11)
  1. ACETAMINOPHEN [Concomitant]
     Indication: CROHN'S DISEASE
  2. CORTICOSTEROIDS [Concomitant]
     Indication: CROHN'S DISEASE
  3. IBUPROFEN [Concomitant]
     Indication: CROHN'S DISEASE
  4. OMEPRAZOLE [Concomitant]
     Route: 048
  5. DYAZIDE [Concomitant]
     Dosage: 37.5-25 MG
     Route: 048
  6. IMMUNOSUPPRESSANTS [Concomitant]
     Indication: CROHN'S DISEASE
  7. PREDNISONE [Concomitant]
     Indication: DRUG TOXICITY PROPHYLAXIS
     Dosage: 10 MG
     Route: 048
     Dates: start: 20110103
  8. ZANTAC [Concomitant]
     Indication: DRUG TOXICITY PROPHYLAXIS
     Route: 048
     Dates: start: 20110103
  9. CIMZIA [Suspect]
     Indication: CROHN'S DISEASE
     Route: 058
     Dates: start: 20101006, end: 20101229
  10. SYNTHROID [Concomitant]
     Route: 048
  11. BUDESONIDE [Concomitant]
     Indication: CROHN'S DISEASE
     Dates: start: 20050501

REACTIONS (1)
  - HYPERSENSITIVITY [None]
